FAERS Safety Report 7827879-5 (Version None)
Quarter: 2011Q4

REPORT INFORMATION
  Report Type: 
  Country: None (occurrence: None)
  Receive Date: 20111020
  Receipt Date: 20111011
  Transmission Date: 20120403
  Serious: Yes (Other)
  Sender: FDA-Public Use
  Company Number: US-BAYER-2010-006021

PATIENT
  Age: 23 Year
  Sex: Female
  Weight: 105.13 kg

DRUGS (1)
  1. MIRENA [Suspect]
     Indication: PRODUCT USED FOR UNKNOWN INDICATION
     Dosage: 20 MCG/24HR, CONT
     Dates: start: 20100421, end: 20101129

REACTIONS (1)
  - PREGNANCY WITH CONTRACEPTIVE DEVICE [None]
